FAERS Safety Report 4352457-2 (Version None)
Quarter: 2004Q2

REPORT INFORMATION
  Report Type: 
  Country: None (occurrence: None)
  Receive Date: 20040428
  Receipt Date: 20040423
  Transmission Date: 20050107
  Serious: Yes (Other)
  Sender: FDA-Public Use
  Company Number: STA-AE-04-MTX-170

PATIENT
  Age: 45 Year
  Sex: Male

DRUGS (3)
  1. METHOTREXATE [Suspect]
     Indication: PSORIATIC ARTHROPATHY
     Dosage: 10 MG 1 X 1 WK, ORAL
     Route: 048
     Dates: start: 20011101
  2. FOLACIN (CALIUM PHOSPHATE/FOLIC/ACID [Concomitant]
  3. BRUFEN-SLOW RELEASE (IBUPROFEN) [Concomitant]

REACTIONS (1)
  - SPLENIC RUPTURE [None]
